FAERS Safety Report 20692041 (Version 9)
Quarter: 2022Q4

REPORT INFORMATION
  Report Type: Spontaneous
  Country: CA (occurrence: CA)
  Receive Date: 20220409
  Receipt Date: 20221115
  Transmission Date: 20230113
  Serious: Yes (Other)
  Sender: FDA-Public Use
  Company Number: CA-CELLTRION INC.-2021CA008860

PATIENT

DRUGS (15)
  1. INFLECTRA [Suspect]
     Active Substance: INFLIXIMAB-DYYB
     Indication: Crohn^s disease
     Dosage: 300 MG, AT WEEKS 0, 2, AND 6, AND THEN EVERY 8 WEEKS
     Route: 042
     Dates: start: 20210514, end: 20210514
  2. INFLECTRA [Suspect]
     Active Substance: INFLIXIMAB-DYYB
     Dosage: 300 MG, AT WEEKS 0, 2, AND 6, AND THEN EVERY 8 WEEKS
     Route: 042
     Dates: start: 20210514, end: 20220907
  3. INFLECTRA [Suspect]
     Active Substance: INFLIXIMAB-DYYB
     Dosage: 300 MG, AT WEEKS 0, 2, AND 6, AND THEN EVERY 8 WEEKS
     Route: 042
     Dates: start: 20210526, end: 20210526
  4. INFLECTRA [Suspect]
     Active Substance: INFLIXIMAB-DYYB
     Dosage: 300 MG, AT WEEKS 0, 2, AND 6, AND THEN EVERY 8 WEEKS
     Route: 042
     Dates: start: 20210621, end: 20210621
  5. INFLECTRA [Suspect]
     Active Substance: INFLIXIMAB-DYYB
     Dosage: 300 MG, AT WEEKS 0, 2, AND 6, AND THEN EVERY 8 WEEKS
     Route: 042
     Dates: start: 20210817, end: 20210817
  6. INFLECTRA [Suspect]
     Active Substance: INFLIXIMAB-DYYB
     Dosage: 300 MG, AT WEEKS 0, 2, AND 6, AND THEN EVERY 8 WEEKS
     Route: 042
     Dates: start: 20211013, end: 20211013
  7. INFLECTRA [Suspect]
     Active Substance: INFLIXIMAB-DYYB
     Dosage: 300 MG, AT WEEKS 0, 2, AND 6, AND THEN EVERY 8 WEEKS
     Route: 042
     Dates: start: 20211208, end: 20211208
  8. INFLECTRA [Suspect]
     Active Substance: INFLIXIMAB-DYYB
     Dosage: 300 MG, AT WEEKS 0, 2, AND 6, AND THEN EVERY 8 WEEKS
     Route: 042
     Dates: start: 20220202, end: 20220202
  9. INFLECTRA [Suspect]
     Active Substance: INFLIXIMAB-DYYB
     Dosage: 300 MG, AT WEEKS 0, 2, AND 6, AND THEN EVERY 8 WEEKS
     Route: 042
     Dates: start: 20220330, end: 20220330
  10. INFLECTRA [Suspect]
     Active Substance: INFLIXIMAB-DYYB
     Dosage: 300 MG, AT WEEKS 0, 2, AND 6, AND THEN EVERY 8 WEEKS
     Route: 042
     Dates: start: 20220525, end: 20220525
  11. INFLECTRA [Suspect]
     Active Substance: INFLIXIMAB-DYYB
     Dosage: 300 MG, AT WEEKS 0, 2, AND 6, AND THEN EVERY 8 WEEKS
     Route: 042
     Dates: start: 20220718, end: 20220718
  12. INFLECTRA [Suspect]
     Active Substance: INFLIXIMAB-DYYB
     Dosage: 300 MG, AT WEEKS 0, 2, AND 6, AND THEN EVERY 8 WEEKS
     Route: 042
     Dates: start: 20220907
  13. ENTOCORT [Concomitant]
     Active Substance: BUDESONIDE
     Dosage: 9 MG (TAPERING)
     Route: 065
     Dates: start: 202104
  14. PREDNISONE [Concomitant]
     Active Substance: PREDNISONE
     Dosage: 1 DF DOSAGE UNKNOWN
     Route: 048
  15. FLUCONAZOLE [Concomitant]
     Active Substance: FLUCONAZOLE
     Dosage: 1 DF DOSAGE UNKNOWN
     Route: 048
     Dates: start: 20220716

REACTIONS (15)
  - Condition aggravated [Not Recovered/Not Resolved]
  - Dental operation [Unknown]
  - Off label use [Unknown]
  - Off label use [Unknown]
  - Intentional product use issue [Unknown]
  - Bartholin^s cyst [Unknown]
  - Arthralgia [Unknown]
  - Oropharyngitis fungal [Unknown]
  - Pruritus [Recovering/Resolving]
  - Abdominal discomfort [Not Recovered/Not Resolved]
  - Mouth ulceration [Unknown]
  - Pruritus [Not Recovered/Not Resolved]
  - Rash [Not Recovered/Not Resolved]
  - Urticaria [Not Recovered/Not Resolved]
  - Alopecia [Not Recovered/Not Resolved]

NARRATIVE: CASE EVENT DATE: 20210514
